FAERS Safety Report 5621793-1 (Version None)
Quarter: 2008Q1

REPORT INFORMATION
  Report Type: 
  Country: None (occurrence: None)
  Receive Date: 20080211
  Receipt Date: 20080204
  Transmission Date: 20080703
  Serious: Yes (Other)
  Sender: FDA-Public Use
  Company Number: NO-BRISTOL-MYERS SQUIBB COMPANY-14068894

PATIENT
  Age: 75 Year
  Sex: Female

DRUGS (2)
  1. METFORMIN HCL [Suspect]
  2. ENALAPRIL MALEATE [Suspect]

REACTIONS (3)
  - CARDIOPULMONARY FAILURE [None]
  - LACTIC ACIDOSIS [None]
  - RENAL FAILURE ACUTE [None]
